FAERS Safety Report 23514786 (Version 1)
Quarter: 2024Q1

REPORT INFORMATION
  Report Type: Report from Study
  Country: GB (occurrence: GB)
  Receive Date: 20240212
  Receipt Date: 20240212
  Transmission Date: 20240410
  Serious: Yes (Hospitalization, Other)
  Sender: FDA-Public Use
  Company Number: GB-ELI_LILLY_AND_COMPANY-GB202312007496

PATIENT
  Age: 33 Year
  Sex: Female
  Weight: 90 kg

DRUGS (1)
  1. TALTZ [Suspect]
     Active Substance: IXEKIZUMAB
     Indication: Psoriasis
     Dosage: 80 MG, ONCE EVERY FOUR WEEKS
     Route: 065
     Dates: start: 20190301, end: 20210408

REACTIONS (6)
  - Maternal exposure during pregnancy [Unknown]
  - Sepsis [Recovered/Resolved]
  - Rash [Recovered/Resolved]
  - Drug hypersensitivity [Recovered/Resolved]
  - Gestational diabetes [Unknown]
  - Thrombosis [Unknown]

NARRATIVE: CASE EVENT DATE: 20200201
